FAERS Safety Report 9277409 (Version 1)
Quarter: 2013Q2

REPORT INFORMATION
  Report Type: Spontaneous
  Country: US (occurrence: US)
  Receive Date: 20130508
  Receipt Date: 20130508
  Transmission Date: 20140414
  Serious: Yes (Other)
  Sender: FDA-Public Use
  Company Number: US-AMGEN-USASP2013031393

PATIENT
  Age: 81 Year
  Sex: Female

DRUGS (1)
  1. PROLIA [Suspect]
     Indication: OSTEOPOROSIS POSTMENOPAUSAL
     Dosage: UNK

REACTIONS (13)
  - Surgery [Unknown]
  - Cystitis [Unknown]
  - Rash erythematous [Unknown]
  - Rash pruritic [Unknown]
  - Skin exfoliation [Unknown]
  - Muscle spasms [Unknown]
  - Hepatic enzyme increased [Unknown]
  - Blood cholesterol abnormal [Unknown]
  - Back pain [Unknown]
  - Arthralgia [Unknown]
  - Sleep disorder [Unknown]
  - Anxiety [Unknown]
  - Pain in extremity [Unknown]
